FAERS Safety Report 7320466-7 (Version None)
Quarter: 2011Q1

REPORT INFORMATION
  Report Type: 
  Country: None (occurrence: None)
  Receive Date: 20110228
  Receipt Date: 20110223
  Transmission Date: 20110831
  Serious: Yes (Other)
  Sender: FDA-Public Use
  Company Number: B0701619A

PATIENT
  Age: 54 Year
  Sex: Female
  Weight: 63 kg

DRUGS (6)
  1. RANITIDINE [Suspect]
     Dates: start: 20110124
  2. LACTULOSE [Concomitant]
     Dates: start: 20101115, end: 20101218
  3. MICONAZOLE [Concomitant]
     Dates: start: 20101115, end: 20101125
  4. LANSOPRAZOLE [Concomitant]
     Dates: start: 20101115, end: 20101213
  5. MICONAZOLE [Concomitant]
     Dates: start: 20110112
  6. LANSOPRAZOLE [Concomitant]
     Dates: start: 20110112

REACTIONS (1)
  - RASH PRURITIC [None]
